FAERS Safety Report 5139335-6 (Version None)
Quarter: 2006Q4

REPORT INFORMATION
  Report Type: 
  Country: None (occurrence: None)
  Receive Date: 20061030
  Receipt Date: 20061017
  Transmission Date: 20070319
  Serious: Yes (Hospitalization)
  Sender: FDA-Public Use
  Company Number: US-ROCHE-467927

PATIENT
  Age: 49 Year
  Sex: Female
  Weight: 120.7 kg

DRUGS (18)
  1. XENICAL [Suspect]
     Indication: OVERWEIGHT
     Route: 048
     Dates: start: 19980615
  2. REGLAN [Concomitant]
     Indication: NAUSEA
     Route: 048
  3. COLACE [Concomitant]
     Indication: CONSTIPATION
     Dosage: DOSING LEVEL: REPORTED AS ^3 DAILY^
     Route: 048
  4. BENADRYL [Concomitant]
     Route: 048
  5. MULTIVITAMIN NOS [Concomitant]
     Dosage: FREQUENTIE: DAILY
     Route: 048
  6. LORAZEPAM [Concomitant]
     Indication: ANXIETY
     Dosage: FREQUENTIE: ^DAILY AS NEEDED^
  7. TRIAM [Concomitant]
     Dosage: DAILY
  8. VERAPAMIL [Concomitant]
     Indication: BLOOD PRESSURE
     Dosage: DAILY
  9. NORVASC [Concomitant]
     Indication: BLOOD PRESSURE
     Dosage: DAILY
  10. LEVOXYL [Concomitant]
     Indication: HYPOTHYROIDISM
     Dosage: DAILY
  11. LASIX [Concomitant]
     Indication: BLOOD PRESSURE
     Dosage: DAILY
  12. LEXAPRO [Concomitant]
     Indication: DEPRESSION
     Dosage: DAILY
  13. PREVACID [Concomitant]
     Indication: UNEVALUABLE EVENT
  14. ALLEGRA [Concomitant]
     Dosage: DAILY
  15. DARVOCET [Concomitant]
     Indication: PAIN
     Dosage: DAILY STRENGTH REPORTED AS 100/650/TAB
  16. DURAGESIC-100 [Concomitant]
     Indication: PAIN
  17. DICYCLOMINE [Concomitant]
     Dosage: DAILY AS NEEDED
  18. PROMETHAZINE [Concomitant]
     Indication: NAUSEA
     Dosage: TWICE DAILY AS NEEDED

REACTIONS (3)
  - CHOLELITHIASIS [None]
  - ECONOMIC PROBLEM [None]
  - HERNIA [None]
